FAERS Safety Report 5104877-6 (Version None)
Quarter: 2006Q3

REPORT INFORMATION
  Report Type: 
  Country: None (occurrence: None)
  Receive Date: 20060911
  Receipt Date: 20060828
  Transmission Date: 20061208
  Serious: Yes (Other)
  Sender: FDA-Public Use
  Company Number: 2006106177

PATIENT
  Age: 47 Year
  Sex: Female
  Weight: 54.4316 kg

DRUGS (6)
  1. LYRICA [Suspect]
     Indication: FIBROMYALGIA
     Dosage: 75 MG (75 MG, 1 IN 1 D),
     Dates: start: 20051001, end: 20060101
  2. ZOLOFT [Concomitant]
  3. PLAQUENIL [Concomitant]
  4. LODINE [Concomitant]
  5. PROVIGIL [Concomitant]
  6. ZYRTEC [Concomitant]

REACTIONS (4)
  - ANGER [None]
  - BLOOD SODIUM DECREASED [None]
  - PAIN [None]
  - WEIGHT INCREASED [None]
